FAERS Safety Report 8722351 (Version 3)
Quarter: 2012Q4

REPORT INFORMATION
  Report Type: 
  Country: JP (occurrence: JP)
  Receive Date: 20120814
  Receipt Date: 20121030
  Transmission Date: 20130627
  Serious: Yes (Hospitalization)
  Sender: FDA-Public Use
  Company Number: JP-009507513-2012SP026227

PATIENT
  Age: 59 Year
  Sex: Female
  Weight: 45 kg

DRUGS (15)
  1. PEGINTRON [Suspect]
     Indication: HEPATITIS C
     Dosage: 60 Microgram, qw
     Route: 058
     Dates: start: 20120406, end: 20120502
  2. PEGINTRON [Suspect]
     Dosage: 40 Microgram, qw
     Route: 058
     Dates: start: 20120511
  3. PEGINTRON [Suspect]
     Dosage: 60 Microgram, qw
     Route: 058
     Dates: end: 20120518
  4. PEGINTRON [Suspect]
     Dosage: 50 Microgram, qw
     Route: 058
     Dates: start: 20120606, end: 20120719
  5. PEGINTRON [Suspect]
     Dosage: 50 Microgram, UNK
     Route: 058
     Dates: start: 20120809, end: 20120830
  6. PEGINTRON [Suspect]
     Dosage: 30 Microgram, UNK
     Route: 058
     Dates: start: 20120906
  7. REBETOL [Suspect]
     Indication: HEPATITIS C
     Dosage: 600 mg, QD
     Route: 048
     Dates: start: 20120406, end: 20120425
  8. REBETOL [Suspect]
     Dosage: 400 mg, QD
     Route: 048
     Dates: start: 20120426, end: 20120507
  9. REBETOL [Suspect]
     Dosage: 200 mg, QD
     Route: 048
     Dates: end: 20120524
  10. REBETOL [Suspect]
     Dosage: 200 mg, qd
     Route: 048
     Dates: start: 20120614, end: 20120725
  11. TELAVIC [Suspect]
     Indication: HEPATITIS C
     Dosage: 1500 mg, QD
     Route: 048
     Dates: start: 20120406, end: 20120514
  12. TELAVIC [Suspect]
     Dosage: 750 mg, QD
     Route: 048
     Dates: start: 20120515, end: 20120521
  13. TELAVIC [Suspect]
     Dosage: 1500 mg, QD
     Route: 048
     Dates: start: 20120522, end: 20120524
  14. OLMETEC [Concomitant]
     Route: 048
  15. RIBALL [Concomitant]
     Dosage: UPDATE (24MAY2012)
     Route: 048
     Dates: start: 20120410

REACTIONS (2)
  - Malaise [Not Recovered/Not Resolved]
  - Malaise [Not Recovered/Not Resolved]
